FAERS Safety Report 6326404-8 (Version None)
Quarter: 2009Q3

REPORT INFORMATION
  Report Type: 
  Country: None (occurrence: None)
  Receive Date: 20090825
  Receipt Date: 20071212
  Transmission Date: 20100115
  Serious: Yes (Hospitalization, Other)
  Sender: FDA-Public Use
  Company Number: US-ASTRAZENECA-2006UW21747

PATIENT
  Age: 15148 Day
  Sex: Female
  Weight: 108.9 kg

DRUGS (10)
  1. SEROQUEL [Suspect]
     Indication: DEPRESSION
     Route: 048
     Dates: start: 20041216
  2. SEROQUEL [Suspect]
     Route: 048
     Dates: end: 20060101
  3. AMARYL [Concomitant]
     Route: 048
     Dates: start: 20021022
  4. ZOCOR [Concomitant]
     Route: 048
     Dates: start: 20040804
  5. PAXIL [Concomitant]
     Route: 048
     Dates: start: 20020124
  6. AMBIEN [Concomitant]
     Route: 048
     Dates: start: 20050710
  7. ACTOS PLUS METFORMIN [Concomitant]
     Dosage: 15MG/500MG
     Route: 048
     Dates: start: 20050820
  8. LYRICA [Concomitant]
     Route: 048
     Dates: start: 20040130
  9. NEXIUM [Concomitant]
     Route: 048
     Dates: start: 20050820
  10. VYTORIN [Concomitant]
     Dosage: 10MG/40MG
     Route: 048
     Dates: start: 20061017

REACTIONS (6)
  - CONVULSION [None]
  - DIABETIC NEUROPATHY [None]
  - DIABETIC RETINOPATHY [None]
  - SYNCOPE [None]
  - TEMPORAL LOBE EPILEPSY [None]
  - TYPE 2 DIABETES MELLITUS [None]
